FAERS Safety Report 9312888 (Version 1)
Quarter: 2013Q2

REPORT INFORMATION
  Report Type: Spontaneous
  Country: JP (occurrence: JP)
  Receive Date: 20130528
  Receipt Date: 20130528
  Transmission Date: 20140414
  Serious: Yes (Death)
  Sender: FDA-Public Use
  Company Number: JP-ASTRAZENECA-2013SE35899

PATIENT
  Age: 93 Year
  Sex: Female

DRUGS (1)
  1. XYLOCAINE POLYAMP [Suspect]
     Dosage: DOSE UNKNOWN
     Route: 053

REACTIONS (1)
  - Anaphylactic reaction [Fatal]
